FAERS Safety Report 5705465-0 (Version None)
Quarter: 2008Q2

REPORT INFORMATION
  Report Type: 
  Country: None (occurrence: None)
  Receive Date: 20080415
  Receipt Date: 20080415
  Transmission Date: 20081010
  Serious: No
  Sender: FDA-Public Use
  Company Number: None

PATIENT
  Age: 27 Year
  Sex: Female
  Weight: 68.0396 kg

DRUGS (2)
  1. HEPARIN [Suspect]
     Indication: PHOTOPHERESIS
     Dosage: 10,000 UNITS ONCE IV DRIP; 1 DOSE
     Route: 041
     Dates: start: 20080211, end: 20080211
  2. ANTICOAGULANT ACD-A SOLUTION [Concomitant]

REACTIONS (2)
  - FEELING ABNORMAL [None]
  - PARAESTHESIA [None]
